FAERS Safety Report 10600270 (Version 1)
Quarter: 2014Q4

REPORT INFORMATION
  Report Type: Other
  Country: DE (occurrence: DE)
  Receive Date: 20141123
  Receipt Date: 20141123
  Transmission Date: 20150529
  Serious: Yes (Congenital Anomaly, Other)
  Sender: FDA-Public Use
  Company Number: DE-MYLANLABS-2014M1010602

PATIENT

DRUGS (2)
  1. SERTRALINE [Suspect]
     Active Substance: SERTRALINE HYDROCHLORIDE
     Indication: PRODUCT USED FOR UNKNOWN INDICATION
     Dosage: UNK; 0- 38.3 GESTATIONAL WEEK
     Route: 064
     Dates: start: 20121224, end: 20130919
  2. LORAZEPAM. [Suspect]
     Active Substance: LORAZEPAM
     Indication: PRODUCT USED FOR UNKNOWN INDICATION
     Dosage: UNK; HALTED 5 DAYS BEFORE DELIVERY; 0- 37.5 GESTATIONAL WEEK
     Route: 064

REACTIONS (5)
  - Hypotonia neonatal [Recovered/Resolved]
  - Respiratory disorder neonatal [Recovered/Resolved]
  - Foetal exposure during pregnancy [Unknown]
  - Agitation neonatal [Recovered/Resolved]
  - Bradycardia neonatal [Recovered/Resolved]

NARRATIVE: CASE EVENT DATE: 20130919
